FAERS Safety Report 10145462 (Version 4)
Quarter: 2016Q1

REPORT INFORMATION
  Report Type: Spontaneous
  Country: US (occurrence: US)
  Receive Date: 20140501
  Receipt Date: 20160203
  Transmission Date: 20160525
  Serious: Yes (Hospitalization, Other)
  Sender: FDA-Public Use
  Company Number: US-JNJFOC-20140415438

PATIENT
  Age: 36 Year
  Sex: Female
  Weight: 69.63 kg

DRUGS (9)
  1. TYLENOL COLD SORE THROAT EXTRA STRENGTH [Suspect]
     Active Substance: ACETAMINOPHEN
     Indication: NASOPHARYNGITIS
     Dosage: ONCE OR TWICE PER DAY
     Route: 048
  2. TYLENOL COLD AND FLU SEVERE [Suspect]
     Active Substance: ACETAMINOPHEN\DEXTROMETHORPHAN HYDROBROMIDE\GUAIFENESIN\PHENYLEPHRINE HYDROCHLORIDE
     Indication: INFLUENZA
     Dosage: ONCE OR TWICE PER DAY
     Route: 048
  3. TYLENOL EXTRA STRENGTH NIGHTTIME [Suspect]
     Active Substance: ACETAMINOPHEN\DIPHENHYDRAMINE HYDROCHLORIDE
     Indication: INSOMNIA
     Dosage: ONCE PER NIGHT
     Route: 048
  4. LORTAB [Suspect]
     Active Substance: ACETAMINOPHEN\HYDROCODONE BITARTRATE
     Indication: PRODUCT USED FOR UNKNOWN INDICATION
     Route: 048
     Dates: start: 200508, end: 200509
  5. TYLENOL COLD SORE THROAT EXTRA STRENGTH [Suspect]
     Active Substance: ACETAMINOPHEN
     Indication: INFLUENZA
     Dosage: ONCE OR TWICE PER DAY
     Route: 048
  6. TYLENOL REGULAR STRENGTH [Suspect]
     Active Substance: ACETAMINOPHEN
     Indication: TOOTHACHE
     Dosage: EVERY 4-6HOURS, 6-8 PILLS PER DAY
     Route: 048
     Dates: start: 20050829, end: 20050903
  7. TYLENOL COLD AND FLU SEVERE [Suspect]
     Active Substance: ACETAMINOPHEN\DEXTROMETHORPHAN HYDROBROMIDE\GUAIFENESIN\PHENYLEPHRINE HYDROCHLORIDE
     Indication: NASOPHARYNGITIS
     Dosage: ONCE OR TWICE PER DAY
     Route: 048
  8. TYLENOL PM [Suspect]
     Active Substance: ACETAMINOPHEN\DIPHENHYDRAMINE
     Indication: INSOMNIA
     Dosage: ONCE PER NIGHT
     Route: 048
  9. TYLENOL EXTRA STRENGTH [Suspect]
     Active Substance: ACETAMINOPHEN
     Indication: TOOTHACHE
     Dosage: EVERY 4-6 HPURS, 6-8 PILLS PER DAY
     Route: 048
     Dates: start: 20050829, end: 20050903

REACTIONS (15)
  - Acute hepatic failure [Unknown]
  - Hypophosphataemia [Unknown]
  - Acute kidney injury [Unknown]
  - Hepatic necrosis [Unknown]
  - Hypotension [Unknown]
  - Hepatitis fulminant [Unknown]
  - Hyperglycaemia [Unknown]
  - Coagulopathy [Unknown]
  - Hyperkalaemia [Unknown]
  - Hyponatraemia [Unknown]
  - Overdose [Unknown]
  - Toxicity to various agents [Unknown]
  - Anaemia [Unknown]
  - Tachycardia [Unknown]
  - Abdominal pain upper [Unknown]

NARRATIVE: CASE EVENT DATE: 200509
